FAERS Safety Report 21526998 (Version 1)
Quarter: 2022Q4

REPORT INFORMATION
  Report Type: Other
  Country: KZ (occurrence: KZ)
  Receive Date: 20221031
  Receipt Date: 20221031
  Transmission Date: 20230112
  Serious: Yes (Other)
  Sender: FDA-Public Use
  Company Number: KZ-MACLEODS PHARMA EU LTD-MAC2022038043

PATIENT

DRUGS (4)
  1. PYRAZINAMIDE [Suspect]
     Active Substance: PYRAZINAMIDE
     Indication: Pulmonary tuberculosis
     Dosage: UNK
     Route: 065
  2. ISONIAZID [Concomitant]
     Active Substance: ISONIAZID
     Indication: Product used for unknown indication
     Dosage: UNK
     Route: 065
  3. R-Cing [Concomitant]
     Indication: Product used for unknown indication
     Dosage: UNK; RK-LS-5 NO. 013640
     Route: 065
  4. Kombutol [Concomitant]
     Indication: Product used for unknown indication
     Dosage: UNK
     Route: 065

REACTIONS (1)
  - Hepatitis toxic [Recovering/Resolving]
